FAERS Safety Report 9465492 (Version 2)
Quarter: 2013Q3

REPORT INFORMATION
  Report Type: Report from Study
  Country: AU (occurrence: AU)
  Receive Date: 20130820
  Receipt Date: 20130830
  Transmission Date: 20140515
  Serious: Yes (Hospitalization, Other)
  Sender: FDA-Public Use
  Company Number: PHHY2013AU089287

PATIENT
  Age: 74 Year
  Sex: Female

DRUGS (3)
  1. ACLASTA [Suspect]
     Dosage: 5 MG, UNK
     Route: 042
     Dates: start: 20120813
  2. ACLASTA [Suspect]
     Dosage: 5 MG, UNK
     Route: 042
     Dates: start: 20130816
  3. CARDIZEM [Suspect]
     Dosage: UNK UKN, UNK

REACTIONS (3)
  - Circulatory collapse [Unknown]
  - Bradycardia [Unknown]
  - Diverticulitis [Recovered/Resolved]
